FAERS Safety Report 20383842 (Version 1)
Quarter: 2022Q1

REPORT INFORMATION
  Report Type: Spontaneous
  Country: CN (occurrence: CN)
  Receive Date: 20220127
  Receipt Date: 20220127
  Transmission Date: 20220423
  Serious: Yes (Hospitalization)
  Sender: FDA-Public Use
  Company Number: CN-009507513-2201CHN007126

PATIENT
  Age: 67 Year
  Sex: Male
  Weight: 75 kg

DRUGS (3)
  1. KEYTRUDA [Suspect]
     Active Substance: PEMBROLIZUMAB
     Indication: Immunochemotherapy
     Dates: start: 20211123, end: 20211123
  2. KEYTRUDA [Suspect]
     Active Substance: PEMBROLIZUMAB
     Dosage: 200 MG, ONCE, INDICATION: IMMUNOTHERAPY
     Route: 041
     Dates: start: 20211214, end: 20211214
  3. SODIUM CHLORIDE [Suspect]
     Active Substance: SODIUM CHLORIDE
     Indication: Medication dilution
     Dosage: 100 ML, ONCE
     Route: 041
     Dates: start: 20220114, end: 20220114

REACTIONS (2)
  - Dermatitis allergic [Recovering/Resolving]
  - Rash [Recovering/Resolving]

NARRATIVE: CASE EVENT DATE: 20211218
